FAERS Safety Report 19776193 (Version 24)
Quarter: 2023Q2

REPORT INFORMATION
  Report Type: Report from Study
  Country: GB (occurrence: GB)
  Receive Date: 20210901
  Receipt Date: 20230519
  Transmission Date: 20230721
  Serious: Yes (Death, Life-Threatening, Hospitalization, Other)
  Sender: FDA-Public Use
  Company Number: None

PATIENT
  Age: 71 Year
  Sex: Female
  Weight: 51.2 kg

DRUGS (123)
  1. CARBOPLATIN [Suspect]
     Active Substance: CARBOPLATIN
     Indication: Non-small cell lung cancer
     Dosage: 450 MILLIGRAM, QD (29-JUL-2020)
     Route: 065
  2. CARBOPLATIN [Suspect]
     Active Substance: CARBOPLATIN
     Indication: Small cell lung cancer extensive stage
     Dosage: 450 MILLIGRAM, QD (450 MG, ONCE PER DAY)/29-JUL-2020
     Route: 065
  3. CARBOPLATIN [Suspect]
     Active Substance: CARBOPLATIN
     Dosage: 450 MILLIGRAM QD (ENDOTRACHEOPULMONARY INSTILLATION)29-JUL-2020
     Route: 065
  4. CLOPIDOGREL [Suspect]
     Active Substance: CLOPIDOGREL BISULFATE
     Indication: Hypertension
     Dosage: UNK (QD)
     Route: 065
  5. CLOPIDOGREL [Suspect]
     Active Substance: CLOPIDOGREL BISULFATE
     Dosage: UNK (ONCE PER DAY/27-AUG-2020)
     Route: 065
  6. CLOPIDOGREL [Suspect]
     Active Substance: CLOPIDOGREL BISULFATE
     Dosage: 1 DOSAGE FORM, QD
     Route: 065
  7. CODEINE PHOSPHATE [Suspect]
     Active Substance: CODEINE PHOSPHATE
     Indication: Pain
     Dosage: UNK (1.5 DAILY)
     Route: 065
  8. CODEINE PHOSPHATE [Suspect]
     Active Substance: CODEINE PHOSPHATE
     Dosage: UNK (2 TIMES PER DAY)
     Route: 065
  9. ZOLMITRIPTAN [Suspect]
     Active Substance: ZOLMITRIPTAN
     Indication: Pain
     Dosage: UNK (ONCE PER DAY)
     Route: 065
  10. AMLODIPINE [Suspect]
     Active Substance: AMLODIPINE BESYLATE
     Indication: Hypertension
     Dosage: UNK (ONCE A DAY)
     Route: 065
  11. AMLODIPINE [Suspect]
     Active Substance: AMLODIPINE BESYLATE
     Dosage: UNK (ONCE A DAY)
     Route: 065
  12. AMLODIPINE [Suspect]
     Active Substance: AMLODIPINE BESYLATE
     Dosage: UNK (ONCE A DAY)
     Route: 065
  13. AMLODIPINE [Suspect]
     Active Substance: AMLODIPINE BESYLATE
     Dosage: UNK (ONCE A DAY)
     Route: 065
  14. AMLODIPINE [Suspect]
     Active Substance: AMLODIPINE BESYLATE
     Dosage: 1 MILLIGRAM, QD (ONCE A DAY)
     Route: 065
  15. AMOXICILLIN [Suspect]
     Active Substance: AMOXICILLIN
     Indication: Product used for unknown indication
     Dosage: UNK (Q6H/10-AUG-2020)
     Route: 065
     Dates: end: 20200816
  16. AMOXICILLIN [Suspect]
     Active Substance: AMOXICILLIN
     Dosage: 1 DOSAGE FORM, QD (10-AUG-2020)
     Route: 065
     Dates: end: 20200816
  17. AMOXICILLIN [Suspect]
     Active Substance: AMOXICILLIN
     Dosage: UNK (QID/10-AUG-2020)
     Route: 065
     Dates: end: 20200816
  18. AMOXICILLIN [Suspect]
     Active Substance: AMOXICILLIN
     Dosage: UNK (10-AUG-2020)
     Route: 065
     Dates: end: 20200816
  19. AMOXICILLIN [Suspect]
     Active Substance: AMOXICILLIN
     Dosage: UNK (4 TIMES PER DAY/10-AUG-2020)
     Route: 065
     Dates: end: 20200816
  20. CIPROFLOXACIN [Suspect]
     Active Substance: CIPROFLOXACIN
     Indication: Prophylaxis
     Dosage: UNK (27-AUG-2020)
     Route: 065
  21. CIPROFLOXACIN [Suspect]
     Active Substance: CIPROFLOXACIN
     Dosage: 2 DOSAGE FORM, QD (27-AUG-2020)
     Route: 065
  22. CIPROFLOXACIN [Suspect]
     Active Substance: CIPROFLOXACIN
     Dosage: UNK ( QD/27-AUG-2020)
     Route: 065
  23. CIPROFLOXACIN [Suspect]
     Active Substance: CIPROFLOXACIN
     Dosage: UNK (2 TIMES PER DAY/27-AUG-2020)
     Route: 065
  24. ETOPOSIDE [Suspect]
     Active Substance: ETOPOSIDE
     Indication: Non-small cell lung cancer
     Dosage: 148 MILLIGRAM, QD (29-JUL-2020)
     Route: 065
  25. ETOPOSIDE [Suspect]
     Active Substance: ETOPOSIDE
     Dosage: 600 MILLIGRAM, QD (30-JUL-2020)
     Route: 048
  26. ETOPOSIDE [Suspect]
     Active Substance: ETOPOSIDE
     Dosage: 148 MILLIGRAM, QD (ONCE PER DAY/29-JUL-2020)
     Route: 065
  27. ETOPOSIDE [Suspect]
     Active Substance: ETOPOSIDE
     Dosage: 600 MILLIGRAM, QD (600 MG, ONCE PER DAY)
     Route: 048
  28. ETOPOSIDE [Suspect]
     Active Substance: ETOPOSIDE
     Indication: Non-small cell lung cancer
     Dosage: 148 MILLIGRAM (29-JUL-2020)
     Route: 042
  29. ETOPOSIDE [Suspect]
     Active Substance: ETOPOSIDE
     Indication: Small cell lung cancer extensive stage
  30. FLUCONAZOLE [Suspect]
     Active Substance: FLUCONAZOLE
     Indication: Candida infection
     Dosage: UNK (QD)
     Route: 065
  31. FLUCONAZOLE [Suspect]
     Active Substance: FLUCONAZOLE
     Dosage: UNK (ONCE PER DAY)
     Route: 065
  32. FLUCONAZOLE [Suspect]
     Active Substance: FLUCONAZOLE
     Dosage: 1 DOSAGE FORM, QD
     Route: 065
  33. FORMOTEROL [Suspect]
     Active Substance: FORMOTEROL
     Indication: Hypertension
     Dosage: 1 MILLIGRAM, BID (01-MAR-2020)
     Route: 065
  34. FORMOTEROL [Suspect]
     Active Substance: FORMOTEROL
     Dosage: 0.5 MILLIGRAM, QD (01-MAR-2020)
     Route: 065
  35. FORMOTEROL [Suspect]
     Active Substance: FORMOTEROL
     Dosage: 0.5 MILLIGRAM, BID (01-MAR-2020)
     Route: 065
  36. FORMOTEROL [Suspect]
     Active Substance: FORMOTEROL
     Dosage: UNK ((QD)/01-MAR-2020)
     Route: 065
  37. LACTULOSE [Suspect]
     Active Substance: LACTULOSE
     Indication: Prophylaxis
     Dosage: UNK (BID)
     Route: 065
  38. LACTULOSE [Suspect]
     Active Substance: LACTULOSE
     Dosage: UNK (ONCE PER DAY (QD))
     Route: 065
  39. LACTULOSE [Suspect]
     Active Substance: LACTULOSE
     Dosage: UNK
     Route: 065
  40. LACTULOSE [Suspect]
     Active Substance: LACTULOSE
     Dosage: UNK (2 TIMES PER DAY)
     Route: 065
  41. LACTULOSE [Suspect]
     Active Substance: LACTULOSE
     Dosage: UNK (2 TIMES PER DAY (Q12H))
     Route: 065
  42. LACTULOSE [Suspect]
     Active Substance: LACTULOSE
     Dosage: 1 DOSAGE FORM, QD
     Route: 065
  43. LACTULOSE [Suspect]
     Active Substance: LACTULOSE
     Dosage: UNK (0.5, QD 2 TIMES PER DAY)
     Route: 065
  44. LACTULOSE [Suspect]
     Active Substance: LACTULOSE
     Dosage: UNK (ONCE PER DAY (QD))
     Route: 065
  45. LACTULOSE [Suspect]
     Active Substance: LACTULOSE
     Dosage: UNK (ONCE PER DAY (QD))
     Route: 065
  46. LANSOPRAZOLE [Suspect]
     Active Substance: LANSOPRAZOLE
     Indication: Prophylaxis
     Dosage: 1 MILLIGRAM, QD (01-JAN-2017)
     Route: 065
  47. LANSOPRAZOLE [Suspect]
     Active Substance: LANSOPRAZOLE
     Dosage: UNK (ONCE PER DAY/01-JAN-2017)
     Route: 065
  48. LANSOPRAZOLE [Suspect]
     Active Substance: LANSOPRAZOLE
     Dosage: UNK (QD  01-JAN-2017)
     Route: 065
  49. LINEZOLID [Suspect]
     Active Substance: LINEZOLID
     Indication: Neutropenic sepsis
     Dosage: UNK (30-AUG-2020)
     Route: 065
  50. LINEZOLID [Suspect]
     Active Substance: LINEZOLID
     Dosage: UNK (30-AUG-2020)
     Route: 065
  51. LINEZOLID [Suspect]
     Active Substance: LINEZOLID
     Dosage: 1 DOSAGE FORM, QD, (30-AUG-2020)
     Route: 065
  52. ALBUTEROL [Suspect]
     Active Substance: ALBUTEROL
     Indication: Prophylaxis
     Dosage: UNK
     Route: 065
  53. ALBUTEROL [Suspect]
     Active Substance: ALBUTEROL
     Dosage: UNK
     Route: 065
  54. MORPHINE [Suspect]
     Active Substance: MORPHINE
     Indication: Prophylaxis
     Dosage: UNK (25-AUG-2020)
     Route: 065
  55. MORPHINE [Suspect]
     Active Substance: MORPHINE
     Dosage: UNK (TWO TIMES A DAY/31-JUL-2020)
     Route: 065
  56. MORPHINE [Suspect]
     Active Substance: MORPHINE
     Dosage: UNK (QD/27-JUL-2020)
     Route: 065
  57. MORPHINE [Suspect]
     Active Substance: MORPHINE
     Dosage: UNK (27-JUL-2020)
     Route: 065
  58. MORPHINE [Suspect]
     Active Substance: MORPHINE
     Dosage: 1 DOSAGE FORM, QD (31-JUL-2020)
     Route: 065
  59. MORPHINE [Suspect]
     Active Substance: MORPHINE
     Dosage: UNK (28-AUG-2020)
     Route: 065
  60. MORPHINE [Suspect]
     Active Substance: MORPHINE
     Dosage: UNK (BID/31-JUL-2020)
     Route: 065
  61. MORPHINE [Suspect]
     Active Substance: MORPHINE
     Dosage: UNK (27-JUL-2020)
     Route: 065
  62. MORPHINE [Suspect]
     Active Substance: MORPHINE
     Dosage: UNK (25-AUG-2020)
     Route: 065
  63. TIOTROPIUM [Suspect]
     Active Substance: TIOTROPIUM
     Indication: Chronic obstructive pulmonary disease
     Dosage: UNK (QD)
     Route: 065
  64. TIOTROPIUM [Suspect]
     Active Substance: TIOTROPIUM
     Dosage: UNK
     Route: 065
  65. VENLAFAXINE [Suspect]
     Active Substance: VENLAFAXINE HYDROCHLORIDE
     Indication: Depression
     Dosage: UNK (QD/ONCE PER DAY)
     Route: 065
  66. VENLAFAXINE [Suspect]
     Active Substance: VENLAFAXINE HYDROCHLORIDE
     Dosage: UNK (QD/20-AUG-2020)
     Route: 065
  67. VENLAFAXINE [Suspect]
     Active Substance: VENLAFAXINE HYDROCHLORIDE
     Dosage: UNK (BID/20-AUG-2020)
     Route: 065
  68. VENLAFAXINE [Suspect]
     Active Substance: VENLAFAXINE HYDROCHLORIDE
     Dosage: UNK (ONCE PER DAY)
     Route: 065
  69. VENLAFAXINE [Suspect]
     Active Substance: VENLAFAXINE HYDROCHLORIDE
     Dosage: UNK (UNK, QD)
     Route: 065
  70. VENLAFAXINE [Suspect]
     Active Substance: VENLAFAXINE HYDROCHLORIDE
     Dosage: 1 MILLIGRAM, BID
     Route: 065
  71. VENLAFAXINE [Suspect]
     Active Substance: VENLAFAXINE HYDROCHLORIDE
     Dosage: 1 DOSAGE FORM, BID (20-AUG-2020)
     Route: 065
  72. VENLAFAXINE [Suspect]
     Active Substance: VENLAFAXINE HYDROCHLORIDE
     Dosage: UNK (0.5 QD/20-AUG-2020)
     Route: 065
  73. VENLAFAXINE [Suspect]
     Active Substance: VENLAFAXINE HYDROCHLORIDE
     Dosage: UNK (BID/20-AUG-2020)
     Route: 065
  74. VORICONAZOLE [Suspect]
     Active Substance: VORICONAZOLE
     Indication: Neutropenic sepsis
     Dosage: UNK (ONCE PER DAY/30-AUG-2020)
     Route: 065
  75. VORICONAZOLE [Suspect]
     Active Substance: VORICONAZOLE
     Dosage: 1 DOSAGE FORM, QD (30-AUG-2020)
     Route: 065
  76. VORICONAZOLE [Suspect]
     Active Substance: VORICONAZOLE
     Dosage: UNK (QD 30-AUG-2020)
     Route: 065
  77. ZOPICLONE [Suspect]
     Active Substance: ZOPICLONE
     Indication: Prophylaxis
     Dosage: 1 MILLIGRAM, QD (31-JUL-2020)
     Route: 065
  78. ZOPICLONE [Suspect]
     Active Substance: ZOPICLONE
     Dosage: UNK (ONCE PER DAY/31-JUL-2020)
     Route: 065
  79. ZOPICLONE [Suspect]
     Active Substance: ZOPICLONE
     Dosage: UNK (QD 31-JUL-2020)
     Route: 065
  80. CYCLIZINE [Suspect]
     Active Substance: CYCLIZINE
     Indication: Neutropenic sepsis
     Dosage: UNK (Q6H (1 IN 0.25 DAY))
     Route: 065
  81. CYCLIZINE [Suspect]
     Active Substance: CYCLIZINE
     Indication: Vomiting
     Dosage: UNK (2 TIMES PER DAY)
     Route: 065
  82. CYCLIZINE [Suspect]
     Active Substance: CYCLIZINE
     Dosage: UNK (Q6H)
     Route: 065
  83. CYCLIZINE [Suspect]
     Active Substance: CYCLIZINE
     Dosage: UNK (TIME INTERVAL)
     Route: 065
  84. CYCLIZINE [Suspect]
     Active Substance: CYCLIZINE
     Dosage: 4 MILLIGRAM, QD
     Route: 065
  85. CYCLIZINE [Suspect]
     Active Substance: CYCLIZINE
     Dosage: 1 DOSAGE FORM, QD
     Route: 065
  86. CYCLIZINE [Suspect]
     Active Substance: CYCLIZINE
     Dosage: UNK
     Route: 065
  87. CYCLIZINE [Suspect]
     Active Substance: CYCLIZINE
     Dosage: UNK (0.25, QD)
     Route: 065
  88. DEXAMETHASONE [Suspect]
     Active Substance: DEXAMETHASONE
     Indication: Dysphagia
     Dosage: 1 MILLIGRAM, QD (26-AUG-2020)
     Route: 065
  89. DEXAMETHASONE [Suspect]
     Active Substance: DEXAMETHASONE
     Dosage: UNK (26-AUG-2020)
     Route: 065
  90. DEXAMETHASONE [Suspect]
     Active Substance: DEXAMETHASONE
     Dosage: UNK (QD,UNK, ONCE PER DAY/26-AUG-2020)
     Route: 065
  91. DEXAMETHASONE [Suspect]
     Active Substance: DEXAMETHASONE
     Dosage: UNK, 1 IN 1 DAY, (25-AUG-2020)
     Route: 065
  92. ATEZOLIZUMAB [Suspect]
     Active Substance: ATEZOLIZUMAB
     Indication: Non-small cell lung cancer
     Dosage: 1200 MILLIGRAM, Q3W (EVERY 3 WEEKS RECENT DOSE PRIOR TO ADVERSE EVENT ONSET ON 19/AUG/29-JUL-2020)
     Route: 065
  93. ATEZOLIZUMAB [Suspect]
     Active Substance: ATEZOLIZUMAB
     Indication: Small cell lung cancer
     Dosage: UNK
     Route: 065
  94. ATEZOLIZUMAB [Suspect]
     Active Substance: ATEZOLIZUMAB
     Indication: Transitional cell carcinoma
     Dosage: 1200 MILLIGRAM, Q3W (TIW)/19-AUG-2020
     Route: 065
  95. ATEZOLIZUMAB [Suspect]
     Active Substance: ATEZOLIZUMAB
     Indication: Small cell lung cancer extensive stage
     Dosage: UNK
     Route: 065
  96. ATEZOLIZUMAB [Suspect]
     Active Substance: ATEZOLIZUMAB
     Dosage: UNK
     Route: 065
  97. ATEZOLIZUMAB [Suspect]
     Active Substance: ATEZOLIZUMAB
     Dosage: 1200 MILLIGRAM, QW (29-JUL-2020)
     Route: 065
  98. ATEZOLIZUMAB [Suspect]
     Active Substance: ATEZOLIZUMAB
     Dosage: (MOST RECENT DOSE OF ATEZOLIZUMAB PRIOR TO ADVERSE EVENT (NAUSEA) ONSET ON 19/AUG/2020)
     Route: 065
  99. BENZYDAMINE [Suspect]
     Active Substance: BENZYDAMINE
     Indication: Prophylaxis
     Dosage: UNK (19-AUG-2020)
     Route: 065
  100. MORPHINE SULFATE [Suspect]
     Active Substance: MORPHINE SULFATE
     Indication: Pain
     Dosage: 1 MILLIGRAM, QD (27-JUL-2020)
     Route: 065
  101. MORPHINE SULFATE [Suspect]
     Active Substance: MORPHINE SULFATE
     Indication: Prophylaxis
     Dosage: UNK (25-AUG-2020)
     Route: 065
  102. MORPHINE SULFATE [Suspect]
     Active Substance: MORPHINE SULFATE
     Dosage: UNK (ONCE PER DAY/31-JUL-2020)
     Route: 065
  103. MORPHINE SULFATE [Suspect]
     Active Substance: MORPHINE SULFATE
     Dosage: UNK (ONCE PER DAY/27-JUL-2020)
     Route: 065
  104. MORPHINE SULFATE [Suspect]
     Active Substance: MORPHINE SULFATE
     Dosage: UNK (ONCE PER DAY/27-JUL-2020)
     Route: 065
  105. ACETAMINOPHEN\CODEINE PHOSPHATE [Suspect]
     Active Substance: ACETAMINOPHEN\CODEINE PHOSPHATE
     Indication: Headache
     Dosage: 0.5 MILLIGRAM, QD
     Route: 065
  106. ACETAMINOPHEN\CODEINE PHOSPHATE [Suspect]
     Active Substance: ACETAMINOPHEN\CODEINE PHOSPHATE
     Indication: Pain
     Dosage: UNK (BID)
     Route: 065
  107. ACETAMINOPHEN\CODEINE PHOSPHATE [Suspect]
     Active Substance: ACETAMINOPHEN\CODEINE PHOSPHATE
     Dosage: UNK (ONCE PER DAY)
     Route: 065
  108. ACETAMINOPHEN\CODEINE PHOSPHATE [Suspect]
     Active Substance: ACETAMINOPHEN\CODEINE PHOSPHATE
     Dosage: UNK (BID)
     Route: 065
  109. ACETAMINOPHEN\CODEINE PHOSPHATE [Suspect]
     Active Substance: ACETAMINOPHEN\CODEINE PHOSPHATE
     Dosage: UNK (BID)
     Route: 065
  110. SPIRIVA [Suspect]
     Active Substance: TIOTROPIUM BROMIDE MONOHYDRATE
     Indication: Chronic obstructive pulmonary disease
     Dosage: UNK (QD)
     Route: 065
  111. SPIRIVA [Suspect]
     Active Substance: TIOTROPIUM BROMIDE MONOHYDRATE
     Dosage: UNK (ONCE PER DAY)
     Route: 065
  112. SPIRIVA [Suspect]
     Active Substance: TIOTROPIUM BROMIDE MONOHYDRATE
     Dosage: 1 DOSAGE FORM, QD
     Route: 065
  113. MAGNESIUM [Concomitant]
     Active Substance: MAGNESIUM
     Indication: Product used for unknown indication
     Dosage: UNK (19-AUG-2020)
     Route: 065
     Dates: end: 20200819
  114. METOCLOPRAMIDE [Concomitant]
     Active Substance: METOCLOPRAMIDE
     Indication: Vomiting
     Dosage: UNK (ONCE PER DAY)
     Route: 065
  115. METOCLOPRAMIDE [Concomitant]
     Active Substance: METOCLOPRAMIDE
     Dosage: UNK
     Route: 065
  116. POTASSIUM BICARBONATE\POTASSIUM CHLORIDE [Concomitant]
     Active Substance: POTASSIUM BICARBONATE\POTASSIUM CHLORIDE
     Indication: Prophylaxis
     Dosage: UNK (5QD/28-AUG-2020)
     Route: 065
     Dates: end: 20200901
  117. POTASSIUM BICARBONATE\POTASSIUM CHLORIDE [Concomitant]
     Active Substance: POTASSIUM BICARBONATE\POTASSIUM CHLORIDE
     Dosage: UNK (2 TIMES PER DAY/19-AUG-2020)
     Route: 065
  118. PHOSPHORIC ACID [Concomitant]
     Active Substance: PHOSPHORIC ACID
     Indication: Product used for unknown indication
     Dosage: UNK (ONCE PER DAY/25-AUG-2020)
     Route: 065
     Dates: end: 20200825
  119. PHOSPHORIC ACID [Concomitant]
     Active Substance: PHOSPHORIC ACID
     Dosage: UNK (QD/25-AUG-2020)
     Route: 065
     Dates: end: 20200825
  120. PHOSPHORIC ACID [Concomitant]
     Active Substance: PHOSPHORIC ACID
     Dosage: UNK
     Route: 065
     Dates: end: 20200825
  121. PHOSPHORIC ACID [Concomitant]
     Active Substance: PHOSPHORIC ACID
     Dosage: UNK
     Route: 065
  122. ONDANSETRON [Concomitant]
     Active Substance: ONDANSETRON
     Indication: Product used for unknown indication
     Dosage: 8 MILLIGRAM (29-JUL-2020)
     Route: 065
     Dates: end: 20200729
  123. ATEZOLIZUMAB [Concomitant]
     Active Substance: ATEZOLIZUMAB
     Dosage: UNK
     Route: 065

REACTIONS (26)
  - Balance disorder [Fatal]
  - Decreased appetite [Fatal]
  - Asthenia [Fatal]
  - Hypomagnesaemia [Fatal]
  - Product use in unapproved indication [Fatal]
  - Skin candida [Fatal]
  - Mucosal inflammation [Fatal]
  - Productive cough [Fatal]
  - Dyspnoea [Fatal]
  - Headache [Fatal]
  - Hypokalaemia [Fatal]
  - Neutropenic sepsis [Fatal]
  - Dehydration [Fatal]
  - Dysphagia [Fatal]
  - Nausea [Fatal]
  - Mouth ulceration [Fatal]
  - Constipation [Fatal]
  - Nervous system disorder [Fatal]
  - Depression [Fatal]
  - Neutrophil count decreased [Fatal]
  - Vomiting [Fatal]
  - Gait disturbance [Fatal]
  - Diarrhoea [Fatal]
  - Anaemia [Fatal]
  - Death [Fatal]
  - Candida infection [Unknown]

NARRATIVE: CASE EVENT DATE: 20200730
